FAERS Safety Report 7035603-1 (Version None)
Quarter: 2010Q4

REPORT INFORMATION
  Report Type: 
  Country: None (occurrence: None)
  Receive Date: 20101008
  Receipt Date: 20101004
  Transmission Date: 20110411
  Serious: Yes (Hospitalization)
  Sender: FDA-Public Use
  Company Number: HR-PFIZER INC-2010125155

PATIENT
  Age: 74 Year
  Sex: Female

DRUGS (6)
  1. CADUET [Suspect]
     Indication: HYPERLIPIDAEMIA
     Dosage: UNK
     Dates: start: 20100601, end: 20100901
  2. WARFARIN [Suspect]
     Indication: ATRIAL FIBRILLATION
     Dosage: 5 MG, UNK
     Dates: start: 20080101, end: 20100901
  3. IRUZID [Suspect]
     Indication: HYPERTENSION
     Dosage: UNK
     Dates: start: 20080101, end: 20100901
  4. FURSEMID [Concomitant]
     Indication: CARDIAC FAILURE
     Dosage: 80 MG, UNK
     Dates: start: 20080101
  5. CONCOR [Concomitant]
     Indication: CARDIAC FAILURE
     Dosage: 1.25 G, UNK
     Dates: start: 20100101
  6. SULPIRIDE [Concomitant]
     Indication: VERTIGO
     Dosage: 50 MG, UNK
     Dates: start: 20080101, end: 20100101

REACTIONS (7)
  - BLOOD UREA INCREASED [None]
  - HAEMATOMA [None]
  - HAEMORRHAGIC DIATHESIS [None]
  - HEPATITIS TOXIC [None]
  - PRURITUS [None]
  - RENAL FAILURE [None]
  - TRANSAMINASES INCREASED [None]
